FAERS Safety Report 7990125-6 (Version None)
Quarter: 2011Q4

REPORT INFORMATION
  Report Type: 
  Country: None (occurrence: None)
  Receive Date: 20111219
  Receipt Date: 20110527
  Transmission Date: 20120403
  Serious: No
  Sender: FDA-Public Use
  Company Number: US-ASTRAZENECA-2011SE33597

PATIENT
  Age: 49 Year
  Sex: Male

DRUGS (4)
  1. CRESTOR [Suspect]
     Route: 048
     Dates: end: 20080101
  2. NIASPAN [Suspect]
     Dosage: 1000 MG AT BEDTIME, OFF AND ON FOR 5-6 YEARS
     Route: 048
     Dates: end: 20110301
  3. NEBIVOLOL HCL [Concomitant]
  4. WELCHOL [Suspect]
     Route: 048
     Dates: end: 20110301

REACTIONS (6)
  - FLUSHING [None]
  - PAIN IN EXTREMITY [None]
  - WEIGHT DECREASED [None]
  - OEDEMA PERIPHERAL [None]
  - MALAISE [None]
  - PSORIATIC ARTHROPATHY [None]
